FAERS Safety Report 8429300-5 (Version None)
Quarter: 2012Q2

REPORT INFORMATION
  Report Type: 
  Country: None (occurrence: None)
  Receive Date: 20120612
  Receipt Date: 20120602
  Transmission Date: 20120825
  Serious: No
  Sender: FDA-Public Use
  Company Number: US-ROXANE LABORATORIES, INC.-2012-RO-01209RO

PATIENT
  Sex: Male

DRUGS (5)
  1. ADVAIR DISKUS 100/50 [Concomitant]
  2. PROPRANOLOL [Concomitant]
  3. IPRATROPIUM BROMIDE [Suspect]
     Indication: RHINORRHOEA
     Route: 045
  4. OMEPRAZOLE [Concomitant]
  5. SINGULAIR [Concomitant]

REACTIONS (1)
  - DRUG INEFFECTIVE [None]
